FAERS Safety Report 7107644-7 (Version None)
Quarter: 2010Q4

REPORT INFORMATION
  Report Type: 
  Country: None (occurrence: None)
  Receive Date: 20101117
  Receipt Date: 20101108
  Transmission Date: 20110411
  Serious: Yes (Death, Hospitalization)
  Sender: FDA-Public Use
  Company Number: JP-JNJFOC-20100401905

PATIENT
  Sex: Female
  Weight: 50 kg

DRUGS (4)
  1. DOXORUBICIN HYDROCHLORIDE [Suspect]
     Indication: OVARIAN CANCER RECURRENT
     Dosage: COURSE 1
     Route: 042
  2. NAUZELIN [Concomitant]
     Indication: PROPHYLAXIS
     Route: 048
  3. EMEND [Concomitant]
     Indication: PROPHYLAXIS
     Route: 048
  4. EMEND [Concomitant]
     Route: 048

REACTIONS (5)
  - FEBRILE NEUTROPENIA [None]
  - NEUTROPHIL COUNT DECREASED [None]
  - PLATELET COUNT DECREASED [None]
  - PYREXIA [None]
  - RENAL IMPAIRMENT [None]
